FAERS Safety Report 4350714-7 (Version None)
Quarter: 2004Q2

REPORT INFORMATION
  Report Type: 
  Country: None (occurrence: None)
  Receive Date: 20040430
  Receipt Date: 20030411
  Transmission Date: 20050107
  Serious: Yes (Disabling, Other)
  Sender: FDA-Public Use
  Company Number: US-MERCK-0304USA01357

PATIENT
  Age: 53 Year
  Sex: Female
  Weight: 86 kg

DRUGS (20)
  1. [THERAPY UNSPECIFIED] [Concomitant]
     Indication: PAIN
     Route: 065
     Dates: start: 19810101
  2. PERCOCET [Concomitant]
     Route: 065
     Dates: start: 20000101, end: 20010101
  3. NORVASC [Concomitant]
     Indication: HYPERTENSION
     Route: 065
     Dates: start: 19980101
  4. VALIUM [Concomitant]
     Route: 065
  5. PREMARIN [Concomitant]
     Indication: HORMONE REPLACEMENT THERAPY
     Route: 065
     Dates: start: 19840101
  6. AVALIDE [Concomitant]
     Indication: HYPERTENSION
     Route: 065
     Dates: start: 20000601
  7. MAXZIDE [Concomitant]
     Route: 065
     Dates: start: 19980101
  8. CLARITIN [Concomitant]
     Route: 065
     Dates: start: 20000101
  9. ATIVAN [Concomitant]
     Route: 065
     Dates: start: 19980101
  10. TOPROL-XL [Concomitant]
     Indication: HYPERTENSION
     Route: 065
     Dates: start: 20000401, end: 20001201
  11. LOPRESSOR [Concomitant]
     Indication: HYPERTENSION
     Route: 065
     Dates: start: 19980101
  12. VIOXX [Suspect]
     Indication: ARTHRALGIA
     Route: 048
     Dates: end: 20020101
  13. VIOXX [Suspect]
     Route: 048
     Dates: end: 20020101
  14. VIOXX [Suspect]
     Route: 048
     Dates: start: 20000501, end: 20011001
  15. VIOXX [Suspect]
     Route: 048
     Dates: start: 19990701, end: 19990101
  16. VIOXX [Suspect]
     Indication: ARTHROPATHY
     Route: 048
     Dates: end: 20020101
  17. VIOXX [Suspect]
     Route: 048
     Dates: end: 20020101
  18. VIOXX [Suspect]
     Route: 048
     Dates: start: 20000501, end: 20011001
  19. VIOXX [Suspect]
     Route: 048
     Dates: start: 19990701, end: 19990101
  20. CALAN [Concomitant]
     Route: 065

REACTIONS (31)
  - ANGINA PECTORIS [None]
  - ANXIETY DISORDER [None]
  - BIPOLAR DISORDER [None]
  - BLOOD PRESSURE INADEQUATELY CONTROLLED [None]
  - BRADYCARDIA [None]
  - DEAFNESS [None]
  - DIZZINESS POSTURAL [None]
  - DYSPEPSIA [None]
  - DYSPNOEA [None]
  - ELECTROCARDIOGRAM ABNORMAL [None]
  - EMOTIONAL DISTRESS [None]
  - ENOPHTHALMOS [None]
  - GASTRIC ULCER [None]
  - GASTROINTESTINAL DISORDER [None]
  - HEADACHE [None]
  - HEART RATE IRREGULAR [None]
  - INFLUENZA LIKE ILLNESS [None]
  - INJURY [None]
  - LACRIMATION INCREASED [None]
  - MEDICATION ERROR [None]
  - MOOD SWINGS [None]
  - MUSCULOSKELETAL DISORDER [None]
  - NASAL POLYPS [None]
  - NAUSEA [None]
  - PANIC DISORDER [None]
  - TINNITUS [None]
  - TOOTH DISORDER [None]
  - TRANSIENT ISCHAEMIC ATTACK [None]
  - VERTIGO [None]
  - VISION BLURRED [None]
  - WEIGHT INCREASED [None]
